FAERS Safety Report 5356762-2 (Version None)
Quarter: 2007Q2

REPORT INFORMATION
  Report Type: 
  Country: None (occurrence: None)
  Receive Date: 20070614
  Receipt Date: 20060824
  Transmission Date: 20071010
  Serious: No
  Sender: FDA-Public Use
  Company Number: US-ASTRAZENECA-2006UW16798

PATIENT
  Age: 52 Year
  Sex: Female
  Weight: 75.3 kg

DRUGS (4)
  1. ATACAND [Suspect]
     Indication: HYPERTENSION
     Route: 048
  2. LIPITOR [Concomitant]
     Route: 048
  3. TOPROL-XL [Concomitant]
     Route: 048
  4. CHILDREN'S ASPIRIN [Concomitant]
     Dosage: 2 TABLS
     Route: 048

REACTIONS (1)
  - WEIGHT INCREASED [None]
